FAERS Safety Report 23564632 (Version 1)
Quarter: 2024Q1

REPORT INFORMATION
  Report Type: Spontaneous
  Country: US (occurrence: None)
  Receive Date: 20240223
  Receipt Date: 20240223
  Transmission Date: 20240409
  Serious: Yes (Hospitalization)
  Sender: FDA-Public Use
  Company Number: None

PATIENT
  Age: 87 Year
  Sex: Female

DRUGS (1)
  1. AMBRISENTAN [Suspect]
     Active Substance: AMBRISENTAN
     Indication: Pulmonary arterial hypertension
     Dosage: FREQ: TAKE 1 TABLET (5 MG TOTAL) BY MOUTH DAILY.
     Route: 048
     Dates: start: 20210224

REACTIONS (3)
  - Pneumonia [None]
  - Weight decreased [None]
  - Atrial fibrillation [None]

NARRATIVE: CASE EVENT DATE: 20240120
